FAERS Safety Report 8058584-0 (Version None)
Quarter: 2012Q1

REPORT INFORMATION
  Report Type: 
  Country: None (occurrence: None)
  Receive Date: 20120120
  Receipt Date: 20120111
  Transmission Date: 20120608
  Serious: Yes (Life-Threatening, Hospitalization)
  Sender: FDA-Public Use
  Company Number: JP-JNJFOC-20110908254

PATIENT
  Sex: Male
  Weight: 62 kg

DRUGS (12)
  1. METHOTREXATE [Concomitant]
     Indication: RHEUMATOID ARTHRITIS
     Route: 048
     Dates: start: 20021219, end: 20110728
  2. LOXONIN [Concomitant]
     Indication: RHEUMATOID ARTHRITIS
     Route: 048
  3. REMICADE [Suspect]
     Indication: RHEUMATOID ARTHRITIS
     Route: 042
     Dates: start: 20040301
  4. REMICADE [Suspect]
     Route: 042
     Dates: start: 20061122
  5. PREDNISOLONE [Concomitant]
     Indication: GASTRITIS
     Route: 048
  6. REMICADE [Suspect]
     Route: 042
     Dates: start: 20100423
  7. REMICADE [Suspect]
     Route: 042
  8. MUCOSTA [Concomitant]
     Indication: GASTROINTESTINAL DISORDER
     Route: 048
  9. VOLTAREN [Concomitant]
     Indication: RHEUMATOID ARTHRITIS
     Route: 054
  10. REMICADE [Suspect]
     Route: 042
     Dates: start: 20110506
  11. FAMOTIDINE [Concomitant]
     Indication: GASTRITIS
     Route: 048
  12. FOLIC ACID [Concomitant]
     Indication: RHEUMATOID ARTHRITIS
     Route: 048

REACTIONS (4)
  - LIVER DISORDER [None]
  - INFECTIOUS PERITONITIS [None]
  - PERITONEAL TUBERCULOSIS [None]
  - HEPATIC CYST [None]
